FAERS Safety Report 9585333 (Version 1)
Quarter: 2013Q4

REPORT INFORMATION
  Report Type: Spontaneous
  Country: US (occurrence: US)
  Receive Date: 20131002
  Receipt Date: 20131002
  Transmission Date: 20140711
  Serious: No
  Sender: FDA-Public Use
  Company Number: US-AMGEN-USASP2013063858

PATIENT
  Age: 20 Year
  Sex: Female

DRUGS (1)
  1. ENBREL [Suspect]
     Indication: RHEUMATOID ARTHRITIS
     Dosage: 25MG/0.5ML, 2 TIMES/WK
     Route: 065
     Dates: start: 2008

REACTIONS (3)
  - Condition aggravated [Unknown]
  - Musculoskeletal stiffness [Unknown]
  - Sinusitis [Unknown]
